FAERS Safety Report 7370166-2 (Version None)
Quarter: 2011Q1

REPORT INFORMATION
  Report Type: 
  Country: None (occurrence: None)
  Receive Date: 20110323
  Receipt Date: 20100325
  Transmission Date: 20110831
  Serious: No
  Sender: FDA-Public Use
  Company Number: US-ASTRAZENECA-2010SE13398

PATIENT
  Sex: Female

DRUGS (3)
  1. ZESTRIL [Suspect]
     Dosage: ZESTRIL
     Route: 048
  2. TOPROL-XL [Suspect]
     Route: 048
  3. ZESTRIL [Suspect]
     Dosage: PRIVINIL
     Route: 048

REACTIONS (3)
  - DRUG DOSE OMISSION [None]
  - HEADACHE [None]
  - EPISTAXIS [None]
